FAERS Safety Report 6709722-0 (Version None)
Quarter: 2010Q2

REPORT INFORMATION
  Report Type: 
  Country: None (occurrence: None)
  Receive Date: 20100504
  Receipt Date: 20100422
  Transmission Date: 20101027
  Serious: Yes (Other)
  Sender: FDA-Public Use
  Company Number: EC-ROCHE-698664

PATIENT
  Age: 37 Year
  Sex: Male
  Weight: 165 kg

DRUGS (1)
  1. XENICAL [Suspect]
     Indication: OVERWEIGHT
     Route: 048
     Dates: start: 20100421, end: 20100422

REACTIONS (3)
  - DIARRHOEA [None]
  - HEADACHE [None]
  - HYPOTENSION [None]
